FAERS Safety Report 14969202 (Version 1)
Quarter: 2018Q2

REPORT INFORMATION
  Report Type: Spontaneous
  Country: US (occurrence: US)
  Receive Date: 20180604
  Receipt Date: 20180604
  Transmission Date: 20180711
  Serious: No
  Sender: FDA-Public Use
  Company Number: US-GALDERMA-US18007390

PATIENT
  Age: 20 Year
  Sex: Female

DRUGS (4)
  1. PROACTIV MD BALANCING TONER [Concomitant]
     Active Substance: COSMETICS
     Indication: ACNE
     Route: 061
     Dates: start: 20171013
  2. PROACTIV SOLUTION DAILY PROTECTION PLUS SUNSCREEN SPF 30 [Suspect]
     Active Substance: AVOBENZONE\HOMOSALATE\OCTINOXATE\OCTISALATE\OXYBENZONE
     Indication: ACNE
     Route: 061
     Dates: start: 20171013, end: 20171210
  3. PROACTIV MD ADAPALENE ACNE TREATMENT [Suspect]
     Active Substance: ADAPALENE
     Indication: ACNE
     Dosage: 0.1%
     Route: 061
     Dates: start: 20171013, end: 20171210
  4. PROACTIV MD DEEP CLEANSING FACE WASH [Concomitant]
     Active Substance: COSMETICS
     Indication: ACNE
     Route: 061
     Dates: start: 20171013

REACTIONS (7)
  - Rash macular [Recovered/Resolved]
  - Inappropriate schedule of drug administration [Recovered/Resolved]
  - Underdose [Recovered/Resolved]
  - Dry skin [Recovered/Resolved]
  - Erythema [Recovered/Resolved]
  - Skin burning sensation [Recovered/Resolved]
  - Skin irritation [Recovered/Resolved]

NARRATIVE: CASE EVENT DATE: 20171013
